FAERS Safety Report 19408193 (Version 1)
Quarter: 2021Q2

REPORT INFORMATION
  Report Type: Report from Study
  Country: US (occurrence: US)
  Receive Date: 20210611
  Receipt Date: 20210611
  Transmission Date: 20210717
  Serious: Yes (Death)
  Sender: FDA-Public Use
  Company Number: US-PFIZER INC-2021670409

PATIENT

DRUGS (4)
  1. CYTOXAN [Suspect]
     Active Substance: CYCLOPHOSPHAMIDE
     Indication: SMALL CELL LUNG CANCER
     Dosage: 800 MG/M2, CYCLIC (IN 500 ML DEXTROSE 5%/WATER (D2W) AS A 1?HOUR INFUSION, DAY 1) EVERY 21 DAYS
     Route: 042
  2. VP?16 [Suspect]
     Active Substance: ETOPOSIDE
     Indication: SMALL CELL LUNG CANCER
     Dosage: 80 MG/M2, CYCLIC (IN 500 ML D5W, DAYS 1 TO 3) EVERY 21 DAYS
     Route: 042
  3. ADRIAMYCIN [Suspect]
     Active Substance: DOXORUBICIN HYDROCHLORIDE
     Indication: SMALL CELL LUNG CANCER
     Dosage: 45 MG/M2, CYCLIC  (DAY 1) REPEATED EVERY 21 DAYS
     Route: 042
  4. PLATINOL [Suspect]
     Active Substance: CISPLATIN
     Indication: SMALL CELL LUNG CANCER
     Dosage: 33MG/M2 IN 250 ML NS OVER 30 MIN AFTER HYDRATION WITH AT LEAST 1L OF NS ON DAYS 1 TO 3 EVERY 21 DAYS
     Route: 042

REACTIONS (1)
  - Infection [Fatal]
